FAERS Safety Report 12778186 (Version 2)
Quarter: 2016Q4

REPORT INFORMATION
  Report Type: Report from Study
  Country: IT (occurrence: IT)
  Receive Date: 20160925
  Receipt Date: 20161024
  Transmission Date: 20170207
  Serious: Yes (Hospitalization, Other)
  Sender: FDA-Public Use
  Company Number: IT-BRISTOL-MYERS SQUIBB COMPANY-BMS-2016-015146

PATIENT
  Age: 60 Year
  Sex: Female

DRUGS (1)
  1. NIVOLUMAB [Suspect]
     Active Substance: NIVOLUMAB
     Indication: NON-SMALL CELL LUNG CANCER
     Dosage: 170 MG, Q2WK
     Route: 042
     Dates: start: 20151216, end: 20160210

REACTIONS (10)
  - Malignant neoplasm progression [Unknown]
  - Dyspnoea [Recovering/Resolving]
  - Lichen planus [Unknown]
  - Aortic stenosis [Unknown]
  - Pleural effusion [Unknown]
  - Hyperpyrexia [Recovering/Resolving]
  - Cardiac failure [Recovering/Resolving]
  - Myocarditis [Unknown]
  - Pericardial effusion [Unknown]
  - Pulmonary hypertension [Unknown]

NARRATIVE: CASE EVENT DATE: 20160218
